FAERS Safety Report 8604509-6 (Version None)
Quarter: 2012Q3

REPORT INFORMATION
  Report Type: 
  Country: None (occurrence: None)
  Receive Date: 20120806
  Receipt Date: 20120806
  Transmission Date: 20120928
  Serious: Yes (Other)
  Sender: FDA-Public Use
  Company Number: None

PATIENT
  Age: 59 Year
  Sex: Female

DRUGS (2)
  1. PEGASYS [Suspect]
     Indication: HEPATITIS C
     Dosage: 180MCG WEEKLY SQ
     Route: 058
     Dates: start: 20120626
  2. RIBAVIRIN [Suspect]
     Indication: HEPATITIS C
     Dosage: 800MG BID PO
     Route: 048
     Dates: start: 20120626

REACTIONS (1)
  - ANAEMIA [None]
